FAERS Safety Report 16148693 (Version 2)
Quarter: 2019Q2

REPORT INFORMATION
  Report Type: Spontaneous
  Country: US (occurrence: US)
  Receive Date: 20190402
  Receipt Date: 20190409
  Transmission Date: 20190711
  Serious: Yes (Hospitalization, Other)
  Sender: FDA-Public Use
  Company Number: US-ELI_LILLY_AND_COMPANY-US201903015587

PATIENT
  Sex: Female

DRUGS (1)
  1. BASAGLAR [Suspect]
     Active Substance: INSULIN GLARGINE
     Indication: PRODUCT USED FOR UNKNOWN INDICATION
     Dosage: 23 IU, DAILY
     Route: 065

REACTIONS (5)
  - Asphyxia [Unknown]
  - Blood glucose increased [Unknown]
  - Pain [Unknown]
  - Renal disorder [Unknown]
  - Liver disorder [Unknown]
